FAERS Safety Report 22219397 (Version 15)
Quarter: 2025Q2

REPORT INFORMATION
  Report Type: Spontaneous
  Country: US (occurrence: US)
  Receive Date: 20230417
  Receipt Date: 20250604
  Transmission Date: 20250717
  Serious: No
  Sender: SANOFI AVENTIS
  Company Number: US-SA-SAC20230413001566

PATIENT
  Age: 15 Year
  Sex: Male

DRUGS (1)
  1. FABRAZYME [Suspect]
     Active Substance: AGALSIDASE BETA
     Route: 065

REACTIONS (2)
  - Drug specific antibody present [Recovering/Resolving]
  - Neutralising antibodies positive [Recovering/Resolving]

NARRATIVE: CASE EVENT DATE: 20230324
